FAERS Safety Report 11972007 (Version 1)
Quarter: 2016Q1

REPORT INFORMATION
  Report Type: Spontaneous
  Country: US (occurrence: US)
  Receive Date: 20160128
  Receipt Date: 20160128
  Transmission Date: 20160526
  Serious: Yes (Other)
  Sender: FDA-Public Use
  Company Number: US-SA-2016SA011893

PATIENT
  Age: 67 Year
  Sex: Female

DRUGS (1)
  1. LANTUS [Suspect]
     Active Substance: INSULIN GLARGINE
     Indication: TYPE 2 DIABETES MELLITUS
     Dosage: DOSE:30 UNIT(S)
     Route: 065

REACTIONS (6)
  - Malaise [Unknown]
  - Disability [Unknown]
  - Thyroid function test abnormal [Unknown]
  - Basedow^s disease [Unknown]
  - Vitamin D decreased [Unknown]
  - Blood iron decreased [Unknown]
